FAERS Safety Report 9726361 (Version 1)
Quarter: 2013Q4

REPORT INFORMATION
  Report Type: Spontaneous
  Country: US (occurrence: None)
  Receive Date: 20131202
  Receipt Date: 20131202
  Transmission Date: 20140711
  Serious: Yes (Other)
  Sender: FDA-Public Use
  Company Number: None

PATIENT
  Age: 50 Year
  Sex: Female
  Weight: 70.7 kg

DRUGS (6)
  1. DRONEDARONE [Suspect]
     Indication: ATRIAL FIBRILLATION
     Dosage: 200 MG / 0.5 TAB  ONCE  OG TUBE
     Dates: start: 20131201, end: 20131201
  2. CALCIUM CARBONATE [Concomitant]
  3. FENTANYL [Concomitant]
  4. NOREPINEPHRINE [Concomitant]
  5. VANCOMYCIN [Concomitant]
  6. ZOSYN [Concomitant]

REACTIONS (1)
  - Torsade de pointes [None]
